FAERS Safety Report 9250310 (Version 1)
Quarter: 2013Q1

REPORT INFORMATION
  Report Type: Spontaneous
  Country: US (occurrence: None)
  Receive Date: 20130305
  Receipt Date: 20130305
  Transmission Date: 20140127
  Serious: Yes (Other)
  Sender: FDA-Public Use
  Company Number: 163-21880-12052962

PATIENT
  Age: 86 Year
  Sex: Female
  Weight: 68.95 kg

DRUGS (18)
  1. REVLIMID [Suspect]
     Indication: PLASMA CELL MYELOMA
     Dosage: 25 MG, QD X21 DAYS, PO
     Route: 048
     Dates: start: 20120201, end: 20120523
  2. DEXAMETHASONE [Suspect]
     Dosage: 40 MG, ONCE, PO
     Route: 048
     Dates: start: 20120201, end: 20120606
  3. MLN9708 [Suspect]
     Route: 048
     Dates: start: 20120201, end: 20120606
  4. VITAMINS (VITAMINS) [Concomitant]
  5. ICAPS (ICAPS) CAPSULE [Concomitant]
  6. SENOKOT (SENNA FRUIT) (TABLETS) [Concomitant]
  7. VITAMIN C (ASCORBIC ACID) (TABLETS) [Concomitant]
  8. CALCIUM 600/VITAMIN D (CALCIUM D (CALCIUM D3 STADA) TABLETS [Concomitant]
  9. VITAMIN E (TOCOPHEROL) (TABLETS) [Concomitant]
  10. NIACIN (NICOTINIC ACID) [Concomitant]
  11. HYDROCHLOROTHIAZIDE (HYDROCHLOROTHIAZIDE) [Concomitant]
  12. POTASSIUM (POTASSIUM) [Concomitant]
  13. LISINOPRIL (LISINOPRIL) [Concomitant]
  14. COSOPT (COSOPT) [Concomitant]
  15. TRAVATAN (TRAVOPROST) [Concomitant]
  16. FISH OIL (FISH OIL) [Concomitant]
  17. VITAMINS [Concomitant]
  18. PANTOPRAZOLE SODIUM (PANTOPRAZOLE SODIUM) [Concomitant]

REACTIONS (3)
  - Anaemia [None]
  - Fatigue [None]
  - Oedema [None]
